FAERS Safety Report 4860330-6 (Version None)
Quarter: 2005Q4

REPORT INFORMATION
  Report Type: 
  Country: None (occurrence: None)
  Receive Date: 20051219
  Receipt Date: 20051209
  Transmission Date: 20060501
  Serious: Yes (Other)
  Sender: FDA-Public Use
  Company Number: CA-BRISTOL-MYERS SQUIBB COMPANY-13217518

PATIENT
  Age: 68 Year
  Sex: Male

DRUGS (12)
  1. TEQUIN [Suspect]
     Route: 048
  2. ALLOPURINOL [Concomitant]
     Route: 048
  3. COLACE [Concomitant]
  4. COLCHICINE [Concomitant]
     Route: 048
  5. DIGOXIN [Concomitant]
     Route: 048
  6. FERROUS SULFATE TAB [Concomitant]
     Route: 048
  7. GLICLAZIDE [Concomitant]
     Route: 048
  8. LASIX [Concomitant]
     Route: 048
  9. LIPITOR [Concomitant]
     Route: 048
  10. LISINOPRIL [Concomitant]
     Route: 048
  11. NITROGLYCERIN [Concomitant]
     Route: 062
  12. WARFARIN SODIUM [Concomitant]
     Route: 048

REACTIONS (1)
  - HYPOGLYCAEMIA [None]
